FAERS Safety Report 22035285 (Version 1)
Quarter: 2023Q1

REPORT INFORMATION
  Report Type: Spontaneous
  Country: JP (occurrence: None)
  Receive Date: 20230224
  Receipt Date: 20230224
  Transmission Date: 20230417
  Serious: Yes (Hospitalization)
  Sender: FDA-Public Use
  Company Number: 2023A024377

PATIENT
  Age: 40 Year
  Sex: Male

DRUGS (9)
  1. DAPAGLIFLOZIN [Suspect]
     Active Substance: DAPAGLIFLOZIN
     Indication: Chronic kidney disease
     Dosage: DOSE UNKNOWN
     Route: 048
     Dates: start: 20221221, end: 20221230
  2. TOLVAPTAN [Concomitant]
     Active Substance: TOLVAPTAN
  3. CILNIDIPINE [Concomitant]
     Active Substance: CILNIDIPINE
  4. FEBUXOSTAT [Concomitant]
     Active Substance: FEBUXOSTAT
  5. ENTRESTO [Concomitant]
     Active Substance: SACUBITRIL\VALSARTAN
  6. NIFEDIPINE [Concomitant]
     Active Substance: NIFEDIPINE
  7. ROSUVASTATIN [Concomitant]
     Active Substance: ROSUVASTATIN
  8. WARFARIN [Concomitant]
     Active Substance: WARFARIN
  9. ELOBIXIBAT [Concomitant]
     Active Substance: ELOBIXIBAT

REACTIONS (3)
  - Cerebellar haemorrhage [Unknown]
  - Asthenia [Recovered/Resolved]
  - Malaise [Recovering/Resolving]

NARRATIVE: CASE EVENT DATE: 20221201
